FAERS Safety Report 8383800-5 (Version None)
Quarter: 2012Q2

REPORT INFORMATION
  Report Type: 
  Country: None (occurrence: None)
  Receive Date: 20120524
  Receipt Date: 20120313
  Transmission Date: 20120825
  Serious: Yes (Other)
  Sender: FDA-Public Use
  Company Number: US-ROCHE-1043144

PATIENT
  Sex: Female
  Weight: 118.04 kg

DRUGS (7)
  1. XOLAIR [Suspect]
     Indication: ASTHMA
     Route: 058
     Dates: start: 20120222
  2. SYMBICORT [Concomitant]
     Indication: ASTHMA
  3. PREDNISONE [Concomitant]
     Dates: start: 20120222
  4. VENTOLIN HFA [Concomitant]
     Indication: ASTHMA
     Dosage: INHALATION,EVERY 4 AS REQUIRED.
  5. ALBUTEROL SULFATE [Concomitant]
     Dosage: NEBULISATION,EVERY 4 AS REQUIRED
  6. ALPRAZOLAM [Concomitant]
     Indication: ANXIETY
     Route: 048
  7. BENADRYL [Concomitant]
     Dates: start: 20120222

REACTIONS (8)
  - DIZZINESS [None]
  - THROAT TIGHTNESS [None]
  - ANAPHYLACTIC REACTION [None]
  - HYPOTENSION [None]
  - LOSS OF CONSCIOUSNESS [None]
  - HEART RATE DECREASED [None]
  - ABDOMINAL PAIN UPPER [None]
  - OXYGEN SATURATION DECREASED [None]
